FAERS Safety Report 4795640-4 (Version None)
Quarter: 2005Q4

REPORT INFORMATION
  Report Type: 
  Country: None (occurrence: None)
  Receive Date: 20051007
  Receipt Date: 20051007
  Transmission Date: 20060501
  Serious: Yes (Death)
  Sender: FDA-Public Use
  Company Number: None

PATIENT
  Age: 76 Year
  Sex: Male

DRUGS (5)
  1. WARFARIN 2MG [Suspect]
     Indication: CEREBROVASCULAR ACCIDENT
     Dosage: 2MG DAILY PO
     Route: 048
  2. ZOLOFT [Concomitant]
  3. LEVOXYL [Concomitant]
  4. WARFARIN [Concomitant]
  5. MIACALCIN [Concomitant]

REACTIONS (2)
  - CEREBRAL HAEMORRHAGE [None]
  - VOMITING [None]
